FAERS Safety Report 12127687 (Version 1)
Quarter: 2016Q1

REPORT INFORMATION
  Report Type: Spontaneous
  Country: US (occurrence: US)
  Receive Date: 20160229
  Receipt Date: 20160229
  Transmission Date: 20160526
  Serious: Yes (Hospitalization)
  Sender: FDA-Public Use
  Company Number: US-BAYER-2016-034005

PATIENT
  Age: 52 Year
  Sex: Female
  Weight: 65.76 kg

DRUGS (1)
  1. BAYER GENUINE ASPIRIN [Suspect]
     Active Substance: ASPIRIN
     Indication: MYALGIA
     Dosage: 2 DF, QD
     Route: 048
     Dates: start: 2006, end: 2006

REACTIONS (2)
  - Silent myocardial infarction [Recovered/Resolved]
  - Product use issue [None]

NARRATIVE: CASE EVENT DATE: 2006
